FAERS Safety Report 24181912 (Version 1)
Quarter: 2024Q3

REPORT INFORMATION
  Report Type: Spontaneous
  Country: PE (occurrence: None)
  Receive Date: 20240807
  Receipt Date: 20240807
  Transmission Date: 20241017
  Serious: Yes (Hospitalization, Other)
  Sender: Alvotech
  Company Number: PE-ALVOTECHPMS-2024LVOTECHPMS-002088

PATIENT
  Age: 30 Year
  Sex: Female

DRUGS (2)
  1. USTEKINUMAB [Suspect]
     Active Substance: USTEKINUMAB
     Indication: Crohn^s disease
     Route: 042
  2. USTEKINUMAB [Suspect]
     Active Substance: USTEKINUMAB
     Indication: Crohn^s disease
     Dosage: EVERY EIGHT WEEKS?MAINTENANCE REGIMEN
     Route: 058

REACTIONS (1)
  - Drug ineffective [Unknown]
